FAERS Safety Report 8051116-2 (Version None)
Quarter: 2012Q1

REPORT INFORMATION
  Report Type: 
  Country: None (occurrence: None)
  Receive Date: 20120117
  Receipt Date: 20120112
  Transmission Date: 20120608
  Serious: Yes (Death, Hospitalization)
  Sender: FDA-Public Use
  Company Number: PHHY2012BR002554

PATIENT
  Sex: Female

DRUGS (3)
  1. PHENERGAN [Concomitant]
     Indication: INSOMNIA
  2. HALDOL [Concomitant]
     Indication: INSOMNIA
  3. EXELON [Suspect]
     Indication: DEMENTIA ALZHEIMER'S TYPE
     Dosage: 4.6 MG\24H
     Route: 062

REACTIONS (4)
  - GASTROINTESTINAL HAEMORRHAGE [None]
  - FEMUR FRACTURE [None]
  - FALL [None]
  - MULTI-ORGAN FAILURE [None]
